FAERS Safety Report 16181145 (Version 9)
Quarter: 2022Q4

REPORT INFORMATION
  Report Type: Report from Study
  Country: JP (occurrence: JP)
  Receive Date: 20190410
  Receipt Date: 20221003
  Transmission Date: 20230112
  Serious: Yes (Hospitalization)
  Sender: FDA-Public Use
  Company Number: JP-DSJP-DSJ-2019-106925AA

PATIENT
  Age: 71 Year
  Sex: Male
  Weight: 77 kg

DRUGS (58)
  1. EDOXABAN TOSYLATE [Suspect]
     Active Substance: EDOXABAN TOSYLATE
     Indication: Atrial fibrillation
     Dosage: 60 MG, QD
     Route: 048
     Dates: start: 20190125, end: 20190222
  2. EDOXABAN TOSYLATE [Suspect]
     Active Substance: EDOXABAN TOSYLATE
     Dosage: 60 MG, QD
     Route: 048
     Dates: start: 20190302, end: 20190612
  3. EDOXABAN TOSYLATE [Suspect]
     Active Substance: EDOXABAN TOSYLATE
     Dosage: 30 MG, QD
     Route: 048
     Dates: start: 20190613, end: 20190615
  4. BISOPROLOL                         /00802602/ [Concomitant]
     Indication: Hypertension
     Dosage: 1.25 MG, BID
     Route: 048
     Dates: start: 20190120, end: 20190621
  5. BISOPROLOL                         /00802602/ [Concomitant]
     Dosage: 2.5 MG, QD
     Route: 048
     Dates: start: 20190716, end: 20190716
  6. BISOPROLOL                         /00802602/ [Concomitant]
     Dosage: 3.125 MG, QD
     Route: 048
     Dates: start: 20190717
  7. HEPARIN [Concomitant]
     Active Substance: HEPARIN SODIUM
     Dosage: 10000IU/DAY
     Route: 041
     Dates: start: 20190118, end: 20190119
  8. HEPARIN [Concomitant]
     Active Substance: HEPARIN SODIUM
     Dosage: 12500 IU/DAY
     Route: 041
     Dates: start: 20190119, end: 20190125
  9. HEPARIN [Concomitant]
     Active Substance: HEPARIN SODIUM
     Dosage: 10000IU/DAY
     Route: 041
     Dates: start: 20190227, end: 20190301
  10. HEPARIN [Concomitant]
     Active Substance: HEPARIN SODIUM
     Dosage: 5000IU/DAY
     Route: 041
     Dates: start: 20190623, end: 20190626
  11. HEPARIN [Concomitant]
     Active Substance: HEPARIN SODIUM
     Dosage: 7500IU/DAY
     Route: 041
     Dates: start: 20190626, end: 20190627
  12. HEPARIN [Concomitant]
     Active Substance: HEPARIN SODIUM
     Dosage: 10000IU/DAY
     Route: 041
     Dates: start: 20190708, end: 20190710
  13. HEPARIN [Concomitant]
     Active Substance: HEPARIN SODIUM
     Dosage: 7500IU/DAY
     Route: 041
     Dates: start: 20190711, end: 20190712
  14. EDARAVONE [Concomitant]
     Active Substance: EDARAVONE
     Dosage: UNK
     Route: 065
     Dates: start: 20190118, end: 20190123
  15. EDARAVONE [Concomitant]
     Active Substance: EDARAVONE
     Dosage: UNK
     Route: 065
     Dates: start: 20190622, end: 20190703
  16. LANSOPRAZOLE [Concomitant]
     Active Substance: LANSOPRAZOLE
     Indication: Chronic gastritis
     Dosage: 15 MG, QD
     Route: 048
     Dates: start: 20190122, end: 20190621
  17. LANSOPRAZOLE [Concomitant]
     Active Substance: LANSOPRAZOLE
     Dosage: UNK
     Route: 048
     Dates: start: 20190624
  18. ALLOPURINOL [Concomitant]
     Active Substance: ALLOPURINOL
     Indication: Hyperuricaemia
     Dosage: 100 MG, QD
     Route: 048
     Dates: end: 20190621
  19. ATORVASTATIN                       /01326102/ [Concomitant]
     Indication: Hypercholesterolaemia
     Dosage: 5 MG, QD
     Route: 048
     Dates: end: 20190621
  20. ATORVASTATIN                       /01326102/ [Concomitant]
     Dosage: UNK
     Route: 048
     Dates: start: 20190730
  21. ZOLPIDEM                           /00914902/ [Concomitant]
     Indication: Insomnia
     Dosage: UNK
     Route: 065
     Dates: start: 20190122, end: 20190123
  22. ZOLPIDEM                           /00914902/ [Concomitant]
     Dosage: 5 MG, QD
     Route: 048
     Dates: start: 20190128, end: 20190609
  23. ZOLPIDEM                           /00914902/ [Concomitant]
     Dosage: UNK
     Route: 065
     Dates: start: 20190612, end: 20190621
  24. BELSOMRA [Concomitant]
     Active Substance: SUVOREXANT
     Dosage: UNK
     Route: 065
     Dates: start: 20190124, end: 20190127
  25. BELSOMRA [Concomitant]
     Active Substance: SUVOREXANT
     Dosage: UNK
     Route: 065
     Dates: start: 20190611, end: 20190611
  26. MIDAZOLAM [Concomitant]
     Active Substance: MIDAZOLAM
     Dosage: UNK
     Route: 065
     Dates: start: 20190225, end: 20190225
  27. GLUCAGON G [Concomitant]
     Dosage: UNK
     Route: 065
     Dates: start: 20190225, end: 20190225
  28. GLUCAGON G [Concomitant]
     Dosage: UNK
     Route: 065
     Dates: start: 20190610, end: 20190610
  29. GLUCAGON G [Concomitant]
     Dosage: UNK
     Route: 065
     Dates: start: 20190619, end: 20190619
  30. MEPERIDINE HYDROCHLORIDE [Concomitant]
     Active Substance: MEPERIDINE HYDROCHLORIDE
     Dosage: UNK
     Route: 065
     Dates: start: 20190225, end: 20190225
  31. LEVOFLOXACIN HEMIHYDRATE [Concomitant]
     Active Substance: LEVOFLOXACIN
     Dosage: UNK
     Route: 065
     Dates: start: 20190226, end: 20190227
  32. MAGNESIUM OXIDE [Concomitant]
     Active Substance: MAGNESIUM OXIDE
     Dosage: UNK
     Route: 065
     Dates: start: 20190227, end: 20190610
  33. MAGNESIUM OXIDE [Concomitant]
     Active Substance: MAGNESIUM OXIDE
     Dosage: UNK
     Route: 065
     Dates: start: 20190614, end: 20190621
  34. MAGNESIUM OXIDE [Concomitant]
     Active Substance: MAGNESIUM OXIDE
     Indication: Constipation prophylaxis
     Dosage: 330 MG, TID
     Route: 048
     Dates: start: 20190610, end: 20190613
  35. FESIN                              /00023550/ [Concomitant]
     Dosage: UNK
     Route: 065
     Dates: start: 20190222, end: 20190225
  36. FESIN                              /00023550/ [Concomitant]
     Dosage: UNK
     Route: 065
     Dates: start: 20190614, end: 20190618
  37. FESIN                              /00023550/ [Concomitant]
     Dosage: UNK
     Route: 065
     Dates: start: 20190709, end: 20190709
  38. FESIN                              /00023550/ [Concomitant]
     Dosage: UNK
     Route: 065
     Dates: start: 20190709, end: 20190712
  39. DEXTROSE [Concomitant]
     Active Substance: DEXTROSE
     Dosage: UNK
     Route: 065
     Dates: start: 20190222, end: 20190225
  40. DEXTROSE [Concomitant]
     Active Substance: DEXTROSE
     Dosage: UNK
     Route: 065
     Dates: start: 20190614, end: 20190618
  41. DEXTROSE [Concomitant]
     Active Substance: DEXTROSE
     Dosage: UNK
     Route: 065
     Dates: start: 20190709, end: 20190712
  42. SODIUM FERROUS CITRATE [Concomitant]
     Active Substance: SODIUM FERROUS CITRATE
     Dosage: UNK
     Route: 065
     Dates: start: 20190612, end: 20190613
  43. SODIUM FERROUS CITRATE [Concomitant]
     Active Substance: SODIUM FERROUS CITRATE
     Dosage: UNK
     Route: 065
     Dates: start: 20190704
  44. LANSOPRAZOLE [Concomitant]
     Active Substance: LANSOPRAZOLE
     Dosage: UNK
     Route: 065
     Dates: start: 20190616, end: 20190618
  45. LANSOPRAZOLE [Concomitant]
     Active Substance: LANSOPRAZOLE
     Dosage: UNK
     Route: 065
     Dates: start: 20190622, end: 20190623
  46. ISOTONIC SODIUM CHLORIDE SOLUTION [Concomitant]
     Active Substance: SODIUM CHLORIDE
     Dosage: UNK
     Route: 065
     Dates: start: 20190616, end: 20190618
  47. ISOTONIC SODIUM CHLORIDE SOLUTION [Concomitant]
     Active Substance: SODIUM CHLORIDE
     Dosage: UNK
     Route: 065
     Dates: start: 20190622, end: 20190623
  48. ISOTONIC SODIUM CHLORIDE SOLUTION [Concomitant]
     Active Substance: SODIUM CHLORIDE
     Dosage: UNK
     Route: 065
     Dates: start: 20190709, end: 20190709
  49. FRUCTOSE\GLYCERIN [Concomitant]
     Active Substance: FRUCTOSE\GLYCERIN
     Dosage: UNK
     Route: 065
     Dates: start: 20190622, end: 20190626
  50. HERBALS [Concomitant]
     Active Substance: HERBALS
     Dosage: UNK
     Route: 065
     Dates: start: 20190625
  51. ELIQUIS [Suspect]
     Active Substance: APIXABAN
     Dosage: 2.5 MG, BID
     Route: 065
     Dates: start: 20190627, end: 20190704
  52. ELIQUIS [Suspect]
     Active Substance: APIXABAN
     Dosage: 5 MG, BID
     Route: 065
     Dates: start: 20190705, end: 20190707
  53. ELIQUIS [Suspect]
     Active Substance: APIXABAN
     Dosage: 5 MG, BID
     Route: 065
     Dates: start: 20190712
  54. SODIUM CHLORIDE [Concomitant]
     Active Substance: SODIUM CHLORIDE
     Dosage: UNK
     Route: 065
     Dates: start: 20190702, end: 20190711
  55. SODIUM CHLORIDE [Concomitant]
     Active Substance: SODIUM CHLORIDE
     Dosage: UNK
     Route: 065
     Dates: start: 20190718, end: 20190729
  56. REMINYL [Concomitant]
     Active Substance: GALANTAMINE
     Dosage: UNK
     Route: 065
     Dates: start: 20190704
  57. AMANTADINE HYDROCHLORIDE [Concomitant]
     Active Substance: AMANTADINE HYDROCHLORIDE
     Dosage: UNK
     Route: 065
     Dates: start: 20190704
  58. SODIUM PHOSPHATE, DIBASIC\SODIUM PHOSPHATE, MONOBASIC [Concomitant]
     Active Substance: SODIUM PHOSPHATE, DIBASIC\SODIUM PHOSPHATE, MONOBASIC
     Dosage: UNK
     Route: 065
     Dates: start: 20190717

REACTIONS (9)
  - Gastrointestinal haemorrhage [Recovered/Resolved]
  - Vascular pseudoaneurysm [Recovered/Resolved]
  - Gastrointestinal haemorrhage [Recovered/Resolved]
  - Anaemia [Recovered/Resolved]
  - Embolic stroke [Recovered/Resolved with Sequelae]
  - Epididymitis [Recovering/Resolving]
  - Diverticulum intestinal [Not Recovered/Not Resolved]
  - Pneumonia aspiration [Recovered/Resolved]
  - Haematoma muscle [Not Recovered/Not Resolved]

NARRATIVE: CASE EVENT DATE: 20190220
